FAERS Safety Report 17273028 (Version 5)
Quarter: 2020Q4

REPORT INFORMATION
  Report Type: Spontaneous
  Country: US (occurrence: US)
  Receive Date: 20200115
  Receipt Date: 20201113
  Transmission Date: 20210113
  Serious: Yes (Other)
  Sender: FDA-Public Use
  Company Number: US-PFIZER INC-2020017484

PATIENT
  Age: 64 Year
  Sex: Female

DRUGS (1)
  1. XELJANZ [Suspect]
     Active Substance: TOFACITINIB CITRATE
     Indication: RHEUMATOID ARTHRITIS
     Dosage: 5 MG, 2X/DAY
     Route: 048
     Dates: start: 201912

REACTIONS (15)
  - Joint swelling [Unknown]
  - Abdominal distension [Unknown]
  - Weight decreased [Unknown]
  - Pain in extremity [Unknown]
  - Blister [Recovering/Resolving]
  - Illness [Unknown]
  - Skin mass [Unknown]
  - Back pain [Recovered/Resolved]
  - Vomiting [Unknown]
  - Cough [Unknown]
  - Dyschezia [Unknown]
  - Staphylococcal infection [Unknown]
  - Arthralgia [Unknown]
  - Abdominal pain [Recovered/Resolved]
  - Decreased appetite [Unknown]
